FAERS Safety Report 4323784-X (Version None)
Quarter: 2004Q1

REPORT INFORMATION
  Report Type: 
  Country: None (occurrence: None)
  Receive Date: 20040323
  Receipt Date: 20040311
  Transmission Date: 20041129
  Serious: Yes (Life-Threatening)
  Sender: FDA-Public Use
  Company Number: FR-JNJFOC-20040302736

PATIENT
  Age: 42 Year
  Sex: Male
  Weight: 73 kg

DRUGS (5)
  1. REMICADE [Suspect]
     Indication: RHEUMATOID ARTHRITIS
     Dosage: SEE IMAGE,  INTRAVENOUS
     Route: 042
     Dates: end: 20020925
  2. REMICADE [Suspect]
     Indication: RHEUMATOID ARTHRITIS
     Dosage: SEE IMAGE,  INTRAVENOUS
     Route: 042
     Dates: start: 20010718
  3. PREDNISONE [Concomitant]
     Indication: RHEUMATOID ARTHRITIS
     Dosage: 10 MG, 1 IN 1 WEEK, ORAL
     Route: 048
  4. METHOTREXATE [Suspect]
     Indication: RHEUMATOID ARTHRITIS
     Dosage: 15 MG, 1 IN 1 WEEK, ORAL
     Route: 048
  5. ENBREL [Suspect]
     Indication: RHEUMATOID ARTHRITIS
     Dosage: 25 MG, 2 IN 1 WEEK, SUBCUTANEOUS
     Route: 058
     Dates: start: 20021113, end: 20030415

REACTIONS (4)
  - ARTHRITIS BACTERIAL [None]
  - DRUG INTERACTION [None]
  - JOINT DESTRUCTION [None]
  - STAPHYLOCOCCAL SEPSIS [None]
